FAERS Safety Report 4445719-1 (Version None)
Quarter: 2004Q3

REPORT INFORMATION
  Report Type: 
  Country: None (occurrence: None)
  Receive Date: 20040903
  Receipt Date: 20040823
  Transmission Date: 20050211
  Serious: Yes (Other)
  Sender: FDA-Public Use
  Company Number: 2004S1000046

PATIENT
  Age: 42 Year
  Sex: Male
  Weight: 59.4212 kg

DRUGS (5)
  1. OXANDRIN [Suspect]
     Indication: WEIGHT DECREASED
     Dosage: 10 MG;BID;PO
     Route: 048
     Dates: start: 20040615, end: 20040721
  2. VIDEX [Suspect]
     Indication: HIV INFECTION
     Dosage: 250 MG; QD; UNKNOWN
     Route: 065
     Dates: end: 20040802
  3. MARINOL [Concomitant]
  4. HAART [Concomitant]
  5. GROWTH HORMONE [Concomitant]

REACTIONS (2)
  - HYPERGLYCAEMIA [None]
  - PANCREATITIS [None]
